FAERS Safety Report 5975603-3 (Version None)
Quarter: 2008Q4

REPORT INFORMATION
  Report Type: 
  Country: None (occurrence: None)
  Receive Date: 20081128
  Receipt Date: 20081120
  Transmission Date: 20090506
  Serious: Yes (Hospitalization)
  Sender: FDA-Public Use
  Company Number: WAES 0808USA01107

PATIENT
  Age: 51 Year
  Sex: Male
  Weight: 89.8122 kg

DRUGS (6)
  1. ZOCOR [Suspect]
     Indication: ACUTE CORONARY SYNDROME
     Dosage: PO
     Dates: start: 20071008, end: 20080727
  2. PLACEBO [Suspect]
     Indication: ACUTE CORONARY SYNDROME
     Dosage: PO
     Route: 048
     Dates: start: 20071008, end: 20080727
  3. METOPROLOL TARTRATE [Concomitant]
  4. DAFALGAN [Concomitant]
  5. PLAVIX [Concomitant]
  6. ASPIRIN [Concomitant]

REACTIONS (3)
  - ABDOMINAL PAIN [None]
  - CARCINOID TUMOUR [None]
  - DIVERTICULITIS MECKEL'S [None]
